FAERS Safety Report 7819673-6 (Version None)
Quarter: 2011Q4

REPORT INFORMATION
  Report Type: 
  Country: None (occurrence: None)
  Receive Date: 20111018
  Receipt Date: 20111005
  Transmission Date: 20120403
  Serious: Yes (Hospitalization)
  Sender: FDA-Public Use
  Company Number: US-UCBSA-042782

PATIENT
  Age: 74 Year
  Sex: Female
  Weight: 110.7 kg

DRUGS (10)
  1. PREDNISONE [Concomitant]
     Indication: RHEUMATOID ARTHRITIS
     Route: 048
  2. TRIAMTERENE AND HYDROCHLOROTHIAZIDE [Concomitant]
     Indication: HYPERTENSION
     Dosage: 25/37.5 MG
     Route: 048
     Dates: start: 19900101
  3. METHOTREXATE [Concomitant]
     Indication: RHEUMATOID ARTHRITIS
     Route: 048
     Dates: start: 20100617
  4. VITAMIN D [Concomitant]
     Indication: VITAMIN SUPPLEMENTATION
     Dosage: 1000 UNITS
     Route: 048
     Dates: start: 20100617
  5. CERTOLIZUMAB PEGOL [Suspect]
     Indication: PSORIATIC ARTHROPATHY
     Dosage: 200
     Route: 058
     Dates: start: 20101103
  6. FOLIC ACID [Concomitant]
     Indication: VITAMIN SUPPLEMENTATION
     Route: 048
     Dates: start: 20100617
  7. VERAPAMIL HCL [Concomitant]
     Indication: HYPERTENSION
     Route: 048
     Dates: start: 19900101
  8. COUMADIN [Concomitant]
     Indication: THROMBOSIS PROPHYLAXIS
     Route: 048
     Dates: start: 20110922
  9. SIMVASTATIN [Concomitant]
     Indication: HYPERLIPIDAEMIA
     Route: 048
     Dates: start: 20060101
  10. LEVOTHROID [Concomitant]
     Indication: HYPOTHYROIDISM
     Route: 048
     Dates: start: 19900101

REACTIONS (1)
  - DEEP VEIN THROMBOSIS [None]
